APPROVED DRUG PRODUCT: HYDROXYZINE HYDROCHLORIDE
Active Ingredient: HYDROXYZINE HYDROCHLORIDE
Strength: 10MG
Dosage Form/Route: TABLET;ORAL
Application: A217652 | Product #001 | TE Code: AB
Applicant: GRAVITI PHARMACEUTICALS PRIVATE LTD
Approved: Aug 17, 2023 | RLD: No | RS: No | Type: RX